FAERS Safety Report 7154215-2 (Version None)
Quarter: 2010Q4

REPORT INFORMATION
  Report Type: 
  Country: None (occurrence: None)
  Receive Date: 20101213
  Receipt Date: 20101130
  Transmission Date: 20110411
  Serious: Yes (Hospitalization, Other)
  Sender: FDA-Public Use
  Company Number: PHHY2010US57612

PATIENT
  Sex: Male
  Weight: 77.2 kg

DRUGS (2)
  1. EXJADE [Suspect]
     Indication: REFRACTORY ANAEMIA
     Dosage: 1500 MG, QD
     Route: 048
  2. EXJADE [Suspect]
     Dosage: DISSOLVE AND DRINK ONE 500 MG TAB WITH ONE 250 MG TAB DAILY FOR 02 WEEKS THEN DISSOLVE AND DRINK
     Route: 048

REACTIONS (4)
  - GASTRIC DISORDER [None]
  - HYPOAESTHESIA [None]
  - MYALGIA [None]
  - SERUM FERRITIN INCREASED [None]
